FAERS Safety Report 8888737 (Version 2)
Quarter: 2012Q4

REPORT INFORMATION
  Report Type: 
  Country: US (occurrence: US)
  Receive Date: 20121106
  Receipt Date: 20121126
  Transmission Date: 20130627
  Serious: Yes (Other)
  Sender: FDA-Public Use
  Company Number: US-ROXANE LABORATORIES, INC.-2012-RO-02342RO

PATIENT
  Age: 78 Year
  Sex: Male

DRUGS (1)
  1. MORPHINE [Suspect]
     Route: 058
     Dates: start: 20121103, end: 20121105

REACTIONS (1)
  - Incorrect route of drug administration [Recovered/Resolved]
